FAERS Safety Report 11858330 (Version 1)
Quarter: 2015Q4

REPORT INFORMATION
  Report Type: Spontaneous
  Country: PT (occurrence: PT)
  Receive Date: 20151222
  Receipt Date: 20151222
  Transmission Date: 20160305
  Serious: Yes (Other)
  Sender: FDA-Public Use
  Company Number: PT-ACTAVIS-2015-28255

PATIENT
  Age: 46 Year
  Sex: Female
  Weight: 80 kg

DRUGS (6)
  1. ONDANSETROM                        /00955301/ [Concomitant]
     Indication: PROPHYLAXIS OF NAUSEA AND VOMITING
     Dosage: 8 MG, DAILY
     Route: 042
     Dates: start: 20151210, end: 20151210
  2. DEXAMETASONA                       /00016001/ [Concomitant]
     Indication: PROPHYLAXIS OF NAUSEA AND VOMITING
     Dosage: 20 MG, DAILY
     Route: 042
     Dates: start: 20151210, end: 20151210
  3. CLEMASTINA [Concomitant]
     Indication: ALLERGY PROPHYLAXIS
     Dosage: 2 MG, DAILY
     Route: 042
     Dates: start: 20151210, end: 20151210
  4. DOCETAXEL ACTAVIS [Suspect]
     Active Substance: DOCETAXEL
     Indication: BREAST CANCER
     Dosage: 150 MG, DAILY, P.V ABRIL (APRIL) / 2017
     Route: 042
     Dates: start: 20151210, end: 20151210
  5. PREDNISOLONA                       /00016201/ [Concomitant]
     Indication: ALLERGY PROPHYLAXIS
     Dosage: 40 MG, DAILY, THE NIGHT BEFORE AND ON THE MORNING OF THE ADMINISTRATION OF THE SUSPECTED DRUG
     Route: 048
     Dates: start: 20151209, end: 20151210
  6. RANITIDINE [Concomitant]
     Active Substance: RANITIDINE\RANITIDINE HYDROCHLORIDE
     Indication: PROPHYLAXIS AGAINST GASTROINTESTINAL ULCER
     Dosage: 50 MG, DAILY
     Route: 042
     Dates: start: 20151210, end: 20151210

REACTIONS (1)
  - Back pain [Recovered/Resolved]

NARRATIVE: CASE EVENT DATE: 20151210
